FAERS Safety Report 16232527 (Version 1)
Quarter: 2019Q2

REPORT INFORMATION
  Report Type: Spontaneous
  Country: CN (occurrence: CN)
  Receive Date: 20190424
  Receipt Date: 20190424
  Transmission Date: 20190711
  Serious: Yes (Other)
  Sender: FDA-Public Use
  Company Number: CN-SILVERGATE PHARMACEUTICALS, INC.-2019SIL00017

PATIENT

DRUGS (2)
  1. CERTOLIZUMAB PEGOL [Concomitant]
     Active Substance: CERTOLIZUMAB PEGOL
     Dosage: 2 INJECTIONS OF 200 MG [400 MG] WEEKS 0, 2 AND 4, FOLLOWED BY CZP 200 MG EVERY 2 WEEKS THEREAFTER
     Route: 058
  2. METHOTREXATE. [Suspect]
     Active Substance: METHOTREXATE
     Indication: RHEUMATOID ARTHRITIS
     Dosage: UNK
     Route: 065
     Dates: start: 2010

REACTIONS (1)
  - Lung adenocarcinoma [Recovered/Resolved]
